FAERS Safety Report 6709351-9 (Version None)
Quarter: 2010Q2

REPORT INFORMATION
  Report Type: 
  Country: None (occurrence: None)
  Receive Date: 20100504
  Receipt Date: 20100420
  Transmission Date: 20101027
  Serious: Yes (Other)
  Sender: FDA-Public Use
  Company Number: PHHY2010GB22794

PATIENT
  Sex: Female

DRUGS (6)
  1. CLOZARIL [Suspect]
     Indication: SCHIZOPHRENIA
     Dosage: UNK
     Dates: start: 20061221, end: 20100101
  2. CLOZARIL [Suspect]
     Dosage: UNK
  3. AZATHIOPRINE [Concomitant]
     Indication: INFLAMMATORY BOWEL DISEASE
  4. BUDESONIDE [Concomitant]
     Indication: INFLAMMATORY BOWEL DISEASE
  5. IMMUNOSUPPRESSANTS [Concomitant]
  6. STEROIDS NOS [Concomitant]

REACTIONS (1)
  - CROHN'S DISEASE [None]
